FAERS Safety Report 4847324-1 (Version None)
Quarter: 2005Q4

REPORT INFORMATION
  Report Type: 
  Country: None (occurrence: None)
  Receive Date: 20051207
  Receipt Date: 20051122
  Transmission Date: 20060501
  Serious: Yes (Disabling)
  Sender: FDA-Public Use
  Company Number: 2005UW17872

PATIENT
  Age: 17356 Day
  Sex: Male
  Weight: 61.4 kg

DRUGS (6)
  1. CRESTOR [Suspect]
     Indication: DYSLIPIDAEMIA
     Route: 048
     Dates: start: 20030823, end: 20050516
  2. TRIZIVIR [Concomitant]
     Dates: start: 20030725
  3. PANTOPRAZOLE SODIUM [Concomitant]
  4. ADVAIR DISKUS 100/50 [Concomitant]
     Route: 055
  5. RIVOSA [Concomitant]
  6. LECTOPAM TAB [Concomitant]

REACTIONS (1)
  - CATARACT [None]
